FAERS Safety Report 21629509 (Version 1)
Quarter: 2022Q4

REPORT INFORMATION
  Report Type: Report from Study
  Country: US (occurrence: US)
  Receive Date: 20221122
  Receipt Date: 20221122
  Transmission Date: 20230112
  Serious: Yes (Disabling)
  Sender: FDA-Public Use
  Company Number: US-BRISTOL-MYERS SQUIBB COMPANY-2022-130017

PATIENT
  Age: 53 Year
  Sex: Female

DRUGS (1)
  1. ZEPOSIA [Suspect]
     Active Substance: OZANIMOD HYDROCHLORIDE
     Indication: Product used for unknown indication
     Route: 048
     Dates: start: 20220127

REACTIONS (3)
  - Dizziness exertional [Not Recovered/Not Resolved]
  - Balance disorder [Not Recovered/Not Resolved]
  - Bladder disorder [Not Recovered/Not Resolved]

NARRATIVE: CASE EVENT DATE: 20220127
